FAERS Safety Report 23882326 (Version 1)
Quarter: 2024Q2

REPORT INFORMATION
  Report Type: Spontaneous
  Country: US (occurrence: US)
  Receive Date: 20240522
  Receipt Date: 20240522
  Transmission Date: 20240716
  Serious: No
  Sender: FDA-Public Use
  Company Number: US-TEVA-VS-3197039

PATIENT
  Age: 67 Year
  Sex: Female

DRUGS (2)
  1. AUSTEDO XR [Suspect]
     Active Substance: DEUTETRABENAZINE
     Indication: Tardive dyskinesia
     Dosage: TAKE 1 TABLET OF 12MG AND 1 TABLET OF 24MG BY MOUTH ONCE DAILY. TOTAL DAILY DOSE OF 36MG DAILY.
     Route: 048
  2. AUSTEDO XR [Suspect]
     Active Substance: DEUTETRABENAZINE
     Indication: Tardive dyskinesia
     Dosage: TAKE 1 TABLET OF 12MG AND 1 TABLET OF 24MG BY MOUTH ONCE DAILY. TOTAL DAILY DOSE OF 36MG DAILY.
     Route: 048

REACTIONS (1)
  - Drug ineffective [Unknown]
